FAERS Safety Report 12807583 (Version 1)
Quarter: 2016Q4

REPORT INFORMATION
  Report Type: Spontaneous
  Country: US (occurrence: US)
  Receive Date: 20161004
  Receipt Date: 20161004
  Transmission Date: 20170207
  Serious: No
  Sender: FDA-Public Use
  Company Number: US-AMGEN-USASP2016000600

PATIENT
  Age: 83 Year
  Sex: Male

DRUGS (2)
  1. XGEVA [Suspect]
     Active Substance: DENOSUMAB
     Indication: PRODUCT USED FOR UNKNOWN INDICATION
     Dosage: UNK
     Route: 065
  2. XTANDI [Concomitant]
     Active Substance: ENZALUTAMIDE
     Indication: PROSTATE CANCER
     Dosage: 160 MG, QD  (40 MG X 4 CAPSULES)
     Route: 048
     Dates: start: 20150630

REACTIONS (4)
  - Amnesia [Unknown]
  - Balance disorder [Not Recovered/Not Resolved]
  - Decreased appetite [Unknown]
  - Urine output decreased [Unknown]

NARRATIVE: CASE EVENT DATE: 201507
